FAERS Safety Report 5752527-8 (Version None)
Quarter: 2008Q2

REPORT INFORMATION
  Report Type: 
  Country: None (occurrence: None)
  Receive Date: 20080527
  Receipt Date: 20080527
  Transmission Date: 20081010
  Serious: Yes (Death)
  Sender: FDA-Public Use
  Company Number: None

PATIENT
  Age: 61 Year
  Sex: Male
  Weight: 113.3993 kg

DRUGS (1)
  1. DIGITEK 0.125MG BERTEK PHA [Suspect]
     Indication: ATRIAL FIBRILLATION
     Dosage: ONE TABLET DAILY PO
     Route: 048
     Dates: start: 20071117, end: 20071122

REACTIONS (1)
  - DEATH [None]
